FAERS Safety Report 13421485 (Version 2)
Quarter: 2017Q4

REPORT INFORMATION
  Report Type: Spontaneous
  Country: US (occurrence: US)
  Receive Date: 20170410
  Receipt Date: 20171019
  Transmission Date: 20180320
  Serious: No
  Sender: FDA-Public Use
  Company Number: US-009507513-1703USA011805

PATIENT
  Age: 23 Year
  Sex: Female
  Weight: 49.43 kg

DRUGS (2)
  1. NUVARING [Suspect]
     Active Substance: ETHINYL ESTRADIOL\ETONOGESTREL
     Indication: OVARIAN CYST
     Dosage: 1 RING, 3 WEEKS IN, 1 WEEK OUT
     Route: 067
     Dates: start: 201610
  2. NUVARING [Suspect]
     Active Substance: ETHINYL ESTRADIOL\ETONOGESTREL
     Indication: CONTRACEPTION

REACTIONS (4)
  - Device expulsion [Unknown]
  - Vaginal haemorrhage [Unknown]
  - Product use in unapproved indication [Unknown]
  - Accidental underdose [Unknown]

NARRATIVE: CASE EVENT DATE: 201610
